FAERS Safety Report 8622766-7 (Version None)
Quarter: 2012Q3

REPORT INFORMATION
  Report Type: 
  Country: None (occurrence: None)
  Receive Date: 20120827
  Receipt Date: 20120820
  Transmission Date: 20120928
  Serious: Yes (Disabling)
  Sender: FDA-Public Use
  Company Number: GB-ACCORD-014471

PATIENT
  Age: 43 Year
  Sex: Female

DRUGS (4)
  1. IFOSFAMIDE [Suspect]
  2. ETOPOSIDE [Suspect]
  3. DOXORUBICIN HYDROCHLORIDE [Suspect]
  4. VINCRISTINE [Suspect]

REACTIONS (2)
  - OFF LABEL USE [None]
  - BLINDNESS [None]
